FAERS Safety Report 5705297-3 (Version None)
Quarter: 2008Q2

REPORT INFORMATION
  Report Type: 
  Country: None (occurrence: None)
  Receive Date: 20080410
  Receipt Date: 20080401
  Transmission Date: 20081010
  Serious: Yes (Hospitalization)
  Sender: FDA-Public Use
  Company Number: 062-C5013-07070156

PATIENT
  Age: 68 Year
  Sex: Male
  Weight: 76 kg

DRUGS (4)
  1. CC-5013 (LENALIDOMIDE) (CAPSULES) [Suspect]
     Indication: MULTIPLE MYELOMA
     Dosage: 25 MG, DAYS 1-21, ORAL; 25 MG, ORAL
     Route: 048
     Dates: start: 20070607, end: 20070627
  2. CC-5013 (LENALIDOMIDE) (CAPSULES) [Suspect]
     Indication: MULTIPLE MYELOMA
     Dosage: 25 MG, DAYS 1-21, ORAL; 25 MG, ORAL
     Route: 048
     Dates: start: 20070730
  3. DEXAMETHASONE TAB [Suspect]
     Indication: MULTIPLE MYELOMA
     Dosage: 40 MG, DAY 1-4, 9-12, 17-20
     Dates: start: 20070607, end: 20070626
  4. BONDRONAT (IBANDRONIC ACID) [Concomitant]

REACTIONS (15)
  - BACTERIAL INFECTION [None]
  - CHILLS [None]
  - HAEMOGLOBIN DECREASED [None]
  - HERPES ZOSTER [None]
  - HYPOPNOEA [None]
  - MIOSIS [None]
  - PAIN [None]
  - PLATELET COUNT DECREASED [None]
  - POST HERPETIC NEURALGIA [None]
  - PSEUDOMONAS INFECTION [None]
  - RESPIRATORY FAILURE [None]
  - SOMNOLENCE [None]
  - SPUTUM CULTURE POSITIVE [None]
  - SUBILEUS [None]
  - WHITE BLOOD CELL COUNT DECREASED [None]
